FAERS Safety Report 9013997 (Version 1)
Quarter: 2013Q1

REPORT INFORMATION
  Report Type: Spontaneous
  Country: US (occurrence: None)
  Receive Date: 20130109
  Receipt Date: 20130109
  Transmission Date: 20140127
  Serious: Yes (Hospitalization)
  Sender: FDA-Public Use
  Company Number: None

PATIENT
  Sex: Male
  Weight: 50.8 kg

DRUGS (1)
  1. NICOTINE PATCHES/ PATCH DONE BASED ON CIGARETTE [Suspect]
     Indication: SMOKING CESSATION THERAPY
     Route: 061
     Dates: start: 20120825, end: 20120906

REACTIONS (5)
  - Back pain [None]
  - Pain in extremity [None]
  - Paraesthesia [None]
  - Muscular weakness [None]
  - Metastases to spine [None]
